FAERS Safety Report 5164023-X (Version None)
Quarter: 2006Q4

REPORT INFORMATION
  Report Type: 
  Country: None (occurrence: None)
  Receive Date: 20061204
  Receipt Date: 20061123
  Transmission Date: 20070319
  Serious: Yes (Hospitalization)
  Sender: FDA-Public Use
  Company Number: IT-BOEHRINGER INGELHEIM PHARMACEUTICALS, INC.-2006-BP-13986YA

PATIENT
  Sex: Male

DRUGS (3)
  1. OMNIC CAPSULES [Suspect]
     Indication: BENIGN PROSTATIC HYPERPLASIA
     Route: 048
     Dates: start: 20060601, end: 20061108
  2. MEPRAL [Suspect]
     Indication: LUNG DISORDER
     Route: 048
     Dates: start: 20060901, end: 20061108
  3. DELTACORTENE [Concomitant]
     Route: 048

REACTIONS (3)
  - MOUTH HAEMORRHAGE [None]
  - PETECHIAE [None]
  - PLATELET COUNT DECREASED [None]
